FAERS Safety Report 17879323 (Version 3)
Quarter: 2020Q3

REPORT INFORMATION
  Report Type: Spontaneous
  Country: US (occurrence: US)
  Receive Date: 20200610
  Receipt Date: 20200812
  Transmission Date: 20201103
  Serious: Yes (Other)
  Sender: FDA-Public Use
  Company Number: NVSC2020US158915

PATIENT
  Sex: Female

DRUGS (1)
  1. BEOVU [Suspect]
     Active Substance: BROLUCIZUMAB-DBLL
     Indication: PRODUCT USED FOR UNKNOWN INDICATION
     Dosage: 6 MG
     Route: 047

REACTIONS (3)
  - Retinal vasculitis [Not Recovered/Not Resolved]
  - Retinal perivascular sheathing [Not Recovered/Not Resolved]
  - Vitritis [Not Recovered/Not Resolved]
